FAERS Safety Report 4711609-X (Version None)
Quarter: 2005Q2

REPORT INFORMATION
  Report Type: 
  Country: None (occurrence: None)
  Receive Date: 20050629
  Receipt Date: 20050418
  Transmission Date: 20051028
  Serious: No
  Sender: FDA-Public Use
  Company Number: 05P-163-0297927-00

PATIENT
  Sex: Female

DRUGS (1)
  1. HUMIRA [Suspect]
     Dosage: 40 MG, SUBCUTANEOUS
     Route: 058
     Dates: start: 20041201

REACTIONS (5)
  - ALOPECIA [None]
  - DRY SKIN [None]
  - INJECTION SITE RASH [None]
  - RASH [None]
  - RHEUMATOID NODULE [None]
